FAERS Safety Report 13926606 (Version 1)
Quarter: 2017Q3

REPORT INFORMATION
  Report Type: Spontaneous
  Country: US (occurrence: US)
  Receive Date: 20170831
  Receipt Date: 20170831
  Transmission Date: 20171127
  Serious: Yes (Hospitalization, Disabling, Other)
  Sender: FDA-Public Use
  Company Number: US-EMD SERONO-8178361

PATIENT
  Age: 67 Year
  Sex: Female
  Weight: 66 kg

DRUGS (21)
  1. VALIUM [Concomitant]
     Active Substance: DIAZEPAM
     Indication: ANXIETY
     Dosage: NIGHT
     Route: 048
  2. VITAMIN B12 [Concomitant]
     Active Substance: CYANOCOBALAMIN
     Indication: PRODUCT USED FOR UNKNOWN INDICATION
  3. DOCUSATE [Concomitant]
     Active Substance: DOCUSATE
     Indication: PRODUCT USED FOR UNKNOWN INDICATION
     Route: 048
  4. AMPYRA [Suspect]
     Active Substance: DALFAMPRIDINE
     Indication: MULTIPLE SCLEROSIS
     Dates: start: 201303, end: 20161223
  5. PLEGRIDY [Suspect]
     Active Substance: PEGINTERFERON BETA-1A
     Indication: MULTIPLE SCLEROSIS
     Dosage: UNDER SKIN FOR EVERY 14 DAYS
     Dates: start: 201303, end: 201701
  6. VITAMIN D3 [Concomitant]
     Active Substance: CHOLECALCIFEROL
     Indication: PRODUCT USED FOR UNKNOWN INDICATION
     Route: 048
  7. TYLENOL EXTRA STRENGTH [Concomitant]
     Active Substance: ACETAMINOPHEN
     Indication: PRODUCT USED FOR UNKNOWN INDICATION
  8. ASMANEX [Concomitant]
     Active Substance: MOMETASONE FUROATE
     Indication: PRODUCT USED FOR UNKNOWN INDICATION
     Dosage: 2 PUFF
  9. SERTRALINE [Concomitant]
     Active Substance: SERTRALINE HYDROCHLORIDE
     Indication: PRODUCT USED FOR UNKNOWN INDICATION
     Route: 048
  10. CRANBERRY                          /01512301/ [Concomitant]
     Active Substance: CRANBERRY
     Indication: PRODUCT USED FOR UNKNOWN INDICATION
  11. REBIF [Suspect]
     Active Substance: INTERFERON BETA-1A
     Indication: MULTIPLE SCLEROSIS
     Route: 058
     Dates: start: 201210
  12. MAGNESIUM OXIDE. [Concomitant]
     Active Substance: MAGNESIUM OXIDE
     Indication: PRODUCT USED FOR UNKNOWN INDICATION
     Route: 048
  13. PREDNISONE. [Concomitant]
     Active Substance: PREDNISONE
     Indication: PRODUCT USED FOR UNKNOWN INDICATION
     Dosage: EVERY 14 DAYS PRIOR TO INTERFERON DOSE ONLY
     Route: 048
  14. TECFIDERA [Suspect]
     Active Substance: DIMETHYL FUMARATE
     Indication: MULTIPLE SCLEROSIS
     Route: 048
  15. PROTONIX [Concomitant]
     Active Substance: PANTOPRAZOLE SODIUM
     Indication: PRODUCT USED FOR UNKNOWN INDICATION
     Route: 048
  16. FERROUS SULFATE. [Concomitant]
     Active Substance: FERROUS SULFATE
     Indication: PRODUCT USED FOR UNKNOWN INDICATION
     Dosage: AFTER BREAKFAST
     Route: 048
  17. MIRALAX [Concomitant]
     Active Substance: POLYETHYLENE GLYCOL 3350
     Indication: PRODUCT USED FOR UNKNOWN INDICATION
  18. CLARITIN [Concomitant]
     Active Substance: LORATADINE
     Indication: PRODUCT USED FOR UNKNOWN INDICATION
     Route: 048
  19. MOBIC [Concomitant]
     Active Substance: MELOXICAM
     Indication: PRODUCT USED FOR UNKNOWN INDICATION
     Route: 048
  20. SINGULAIR [Concomitant]
     Active Substance: MONTELUKAST SODIUM
     Indication: PRODUCT USED FOR UNKNOWN INDICATION
     Dosage: NIGHTLY
     Route: 048
  21. ALBUTEROL                          /00139501/ [Concomitant]
     Active Substance: ALBUTEROL
     Indication: PRODUCT USED FOR UNKNOWN INDICATION

REACTIONS (37)
  - Acute kidney injury [Recovering/Resolving]
  - Gastrooesophageal reflux disease [Unknown]
  - Pericardial effusion [Unknown]
  - Raynaud^s phenomenon [Unknown]
  - Rhinitis allergic [Unknown]
  - Hyperlipidaemia [Unknown]
  - Leukocytosis [Recovered/Resolved]
  - Gastrointestinal disorder [Unknown]
  - Cholelithiasis [Unknown]
  - Ascites [Unknown]
  - Acute respiratory failure [Unknown]
  - Chronic obstructive pulmonary disease [Unknown]
  - Acrochordon [Unknown]
  - Pneumonia [Unknown]
  - Coronary artery disease [Unknown]
  - Postoperative renal failure [Recovering/Resolving]
  - Tinnitus [Unknown]
  - Diverticular perforation [Unknown]
  - Cervical spinal stenosis [Unknown]
  - Pleural effusion [Unknown]
  - Wound [Unknown]
  - Hypoalbuminaemia [Unknown]
  - Hypotension [Unknown]
  - Renal tubular necrosis [Unknown]
  - Atelectasis [Unknown]
  - Asthma [Unknown]
  - Abdominal abscess [Recovered/Resolved]
  - Delirium [Unknown]
  - Nephropathy toxic [Unknown]
  - Hypertension [Unknown]
  - Deafness [Unknown]
  - Diverticulitis [Recovered/Resolved]
  - Sepsis [Unknown]
  - Peritonitis [Recovered/Resolved]
  - Hemiparesis [Unknown]
  - Acute pulmonary oedema [Unknown]
  - Diarrhoea [Recovering/Resolving]

NARRATIVE: CASE EVENT DATE: 2013
